FAERS Safety Report 12506783 (Version 1)
Quarter: 2016Q2

REPORT INFORMATION
  Report Type: Spontaneous
  Country: US (occurrence: US)
  Receive Date: 20160628
  Receipt Date: 20160628
  Transmission Date: 20160815
  Serious: Yes (Hospitalization)
  Sender: FDA-Public Use
  Company Number: US-ASTRAZENECA-2016SE38504

PATIENT
  Age: 67 Year
  Sex: Female
  Weight: 66 kg

DRUGS (5)
  1. SILDENAFIL CITRATE. [Suspect]
     Active Substance: SILDENAFIL CITRATE
     Indication: NON-SMALL CELL LUNG CANCER
     Dosage: EVERY DAY
     Route: 048
  2. RIFAMPIN. [Suspect]
     Active Substance: RIFAMPIN
     Indication: NON-SMALL CELL LUNG CANCER
     Dosage: EVERY DAY
     Route: 048
  3. ITRACONAZOLE. [Suspect]
     Active Substance: ITRACONAZOLE
     Indication: NON-SMALL CELL LUNG CANCER
     Dosage: EVERY DAY
     Route: 048
  4. ESOMEPRAZOLE [Suspect]
     Active Substance: ESOMEPRAZOLE
     Indication: NON-SMALL CELL LUNG CANCER
     Dosage: EVERY DAY
     Route: 048
  5. PF-06747775 [Suspect]
     Active Substance: INVESTIGATIONAL PRODUCT
     Indication: NON-SMALL CELL LUNG CANCER
     Route: 048
     Dates: start: 20160222

REACTIONS (1)
  - Dehydration [Recovered/Resolved]

NARRATIVE: CASE EVENT DATE: 20160318
